FAERS Safety Report 11008733 (Version 2)
Quarter: 2015Q2

REPORT INFORMATION
  Report Type: Spontaneous
  Country: JP (occurrence: JP)
  Receive Date: 20150410
  Receipt Date: 20150505
  Transmission Date: 20150821
  Serious: Yes (Other)
  Sender: FDA-Public Use
  Company Number: JP-JNJFOC-20150307571

PATIENT
  Age: 37 Year
  Sex: Male

DRUGS (5)
  1. ANTEBATE [Concomitant]
     Active Substance: BETAMETHASONE DIPROPIONATE
     Indication: ATOPY
     Route: 061
     Dates: start: 20130612, end: 201308
  2. ANTEBATE [Concomitant]
     Active Substance: BETAMETHASONE DIPROPIONATE
     Indication: ATOPY
     Route: 061
     Dates: start: 20130527
  3. LOCOID [Concomitant]
     Active Substance: HYDROCORTISONE BUTYRATE
     Route: 061
  4. OXAROL [Concomitant]
     Active Substance: MAXACALCITOL
     Indication: ATOPY
     Route: 061
     Dates: start: 20130612, end: 201308
  5. STELARA [Suspect]
     Active Substance: USTEKINUMAB
     Indication: PSORIASIS
     Route: 058
     Dates: start: 20130612

REACTIONS (2)
  - Cellulitis [Recovering/Resolving]
  - Atopy [Not Recovered/Not Resolved]

NARRATIVE: CASE EVENT DATE: 20130807
